FAERS Safety Report 18871277 (Version 1)
Quarter: 2021Q1

REPORT INFORMATION
  Report Type: Spontaneous
  Country: US (occurrence: US)
  Receive Date: 20210210
  Receipt Date: 20210210
  Transmission Date: 20210420
  Serious: No
  Sender: FDA-Public Use
  Company Number: US-SA-2021SA035888

PATIENT
  Age: 57 Year
  Sex: Male

DRUGS (5)
  1. LATANOPROST. [Concomitant]
     Active Substance: LATANOPROST
  2. DUPIXENT [Suspect]
     Active Substance: DUPILUMAB
     Indication: SEBORRHOEIC DERMATITIS
     Dosage: 300 MG, QOW
     Route: 058
     Dates: start: 20180322
  3. ATORVASTATIN [Concomitant]
     Active Substance: ATORVASTATIN
  4. DUPIXENT [Suspect]
     Active Substance: DUPILUMAB
     Dosage: UNK
  5. LOSARTAN POTASSIUM. [Concomitant]
     Active Substance: LOSARTAN POTASSIUM

REACTIONS (2)
  - Product dose omission in error [Unknown]
  - Product use in unapproved indication [Unknown]

NARRATIVE: CASE EVENT DATE: 20210121
